FAERS Safety Report 16571672 (Version 1)
Quarter: 2019Q3

REPORT INFORMATION
  Report Type: Report from Study
  Country: CA (occurrence: CA)
  Receive Date: 20190715
  Receipt Date: 20190715
  Transmission Date: 20191004
  Serious: Yes (Hospitalization, Other)
  Sender: FDA-Public Use
  Company Number: CA-JNJFOC-20190416798

PATIENT
  Age: 75 Year
  Sex: Male

DRUGS (5)
  1. IMBRUVICA [Suspect]
     Active Substance: IBRUTINIB
     Indication: MARGINAL ZONE LYMPHOMA
     Dosage: STRENGTH = 140 MG
     Route: 048
  2. IMBRUVICA [Suspect]
     Active Substance: IBRUTINIB
     Route: 048
  3. IMBRUVICA [Suspect]
     Active Substance: IBRUTINIB
     Route: 048
     Dates: start: 20190416
  4. IMBRUVICA [Suspect]
     Active Substance: IBRUTINIB
     Route: 048
  5. IMBRUVICA [Suspect]
     Active Substance: IBRUTINIB
     Route: 048
     Dates: start: 20190416

REACTIONS (19)
  - Decreased appetite [Unknown]
  - Incorrect dose administered [Unknown]
  - Nausea [Unknown]
  - Arrhythmia [Unknown]
  - Fatigue [Unknown]
  - Muscular weakness [Unknown]
  - Myalgia [Unknown]
  - Cardiac failure acute [Unknown]
  - Atrial fibrillation [Unknown]
  - Confusional state [Unknown]
  - Weight decreased [Unknown]
  - Lip haemorrhage [Unknown]
  - Diarrhoea [Unknown]
  - Insomnia [Unknown]
  - Muscle atrophy [Unknown]
  - Contusion [Unknown]
  - Mucosal haemorrhage [Unknown]
  - Off label use [Unknown]
  - Arthritis [Unknown]
